FAERS Safety Report 17302157 (Version 4)
Quarter: 2020Q1

REPORT INFORMATION
  Report Type: Spontaneous
  Country: US (occurrence: US)
  Receive Date: 20200122
  Receipt Date: 20200218
  Transmission Date: 20200409
  Serious: No
  Sender: FDA-Public Use
  Company Number: US-JNJFOC-20200129999

PATIENT
  Sex: Female

DRUGS (1)
  1. WOMENS ROGAINE UNSCENTED [Suspect]
     Active Substance: MINOXIDIL
     Indication: ALOPECIA
     Dosage: APPLIED LIBERALLY REGARDLESS OF THE LABEL INSTRUCTION
     Route: 061

REACTIONS (4)
  - Product formulation issue [Unknown]
  - Seborrhoea [Recovering/Resolving]
  - Incorrect dose administered [Unknown]
  - Poor quality product administered [Unknown]
